FAERS Safety Report 25541125 (Version 1)
Quarter: 2025Q3

REPORT INFORMATION
  Report Type: Report from Study
  Country: US (occurrence: US)
  Receive Date: 20250710
  Receipt Date: 20250710
  Transmission Date: 20251020
  Serious: Yes (Other)
  Sender: MALLINCKRODT
  Company Number: US-MALLINCKRODT-MNK202504020

PATIENT
  Age: 68 Year
  Sex: Female

DRUGS (4)
  1. CORTICOTROPIN [Suspect]
     Active Substance: CORTICOTROPIN
     Indication: Pulmonary sarcoidosis
     Route: 058
     Dates: start: 20250302
  2. METFORMIN [Suspect]
     Active Substance: METFORMIN HYDROCHLORIDE
     Indication: Type 2 diabetes mellitus
  3. HYDROCHLOROTHIAZIDE [Concomitant]
     Active Substance: HYDROCHLOROTHIAZIDE
     Indication: Hypertension
  4. LOSARTAN [Concomitant]
     Active Substance: LOSARTAN
     Indication: Hypertension

REACTIONS (15)
  - Acute kidney injury [Recovered/Resolved]
  - Circulatory collapse [Recovered/Resolved]
  - Renal impairment [Unknown]
  - Loss of consciousness [Unknown]
  - Syncope [Recovered/Resolved]
  - Muscle spasms [Recovered/Resolved]
  - Memory impairment [Unknown]
  - Fall [Unknown]
  - Contusion [Unknown]
  - Dehydration [Recovered/Resolved]
  - Mass [Unknown]
  - Hypoaesthesia [Recovered/Resolved]
  - Pain in extremity [Recovered/Resolved]
  - Presyncope [Unknown]
  - Headache [Unknown]

NARRATIVE: CASE EVENT DATE: 20250101
